FAERS Safety Report 9887437 (Version 1)
Quarter: 2014Q1

REPORT INFORMATION
  Report Type: Spontaneous
  Country: US (occurrence: None)
  Receive Date: 20140207
  Receipt Date: 20140207
  Transmission Date: 20141002
  Serious: No
  Sender: FDA-Public Use
  Company Number: None

PATIENT
  Age: 64 Year
  Sex: Female

DRUGS (1)
  1. KINERET [Suspect]
     Dosage: INJECT 100 MG UNDER THE SKIN ONCE DAILY
     Route: 058
     Dates: start: 20131118

REACTIONS (8)
  - Fall [None]
  - Rotator cuff syndrome [None]
  - Blood pressure increased [None]
  - Blood glucose increased [None]
  - Blood creatinine increased [None]
  - Cardiac flutter [None]
  - Inflammation [None]
  - Oesophageal disorder [None]
